FAERS Safety Report 8948971 (Version 6)
Quarter: 2013Q2

REPORT INFORMATION
  Report Type: Report from Study
  Country: BR (occurrence: BR)
  Receive Date: 20121206
  Receipt Date: 20130613
  Transmission Date: 20140414
  Serious: Yes (Hospitalization, Other)
  Sender: FDA-Public Use
  Company Number: BR-ROCHE-701939

PATIENT
  Age: 49 Year
  Sex: Female
  Weight: 72 kg

DRUGS (19)
  1. MABTHERA [Suspect]
     Indication: RHEUMATOID ARTHRITIS
     Dosage: FREQUENCY REPORTED AS : 15 DAYS.
     Route: 042
     Dates: start: 2008, end: 20130103
  2. MABTHERA [Suspect]
     Dosage: FREQUENCY REPORTED AS 15 DAYS
     Route: 042
     Dates: start: 2009, end: 2009
  3. MABTHERA [Suspect]
     Dosage: DOSE: 500 MG/50 ML, SECOND DOSE OF CYCLE WAS ADMINISTERED ON 28 OCTOBER 2009.
     Route: 042
     Dates: start: 20091014, end: 20091028
  4. MABTHERA [Suspect]
     Dosage: DOSE: 1000MG/10 MLINFUSION; SECOND DOSE OF CYCLE WAS ADMINISTERED ON 16 JUN 2010. FORM: INFUSION
     Route: 042
     Dates: start: 20100526, end: 20100616
  5. MABTHERA [Suspect]
     Dosage: FORM:INFUSION
     Route: 042
  6. DRAMIN [Suspect]
     Indication: PREMEDICATION
     Route: 065
  7. TRAMADOL [Concomitant]
     Dosage: DOSE: 50 MG, DRUG: TIMASEN; FREQUENCY: AT NIGHT
     Route: 065
  8. CALCORT [Concomitant]
     Route: 065
  9. EUTHYROX [Concomitant]
     Dosage: START DATE REPORTED AS ^LONG TIME AGO^.
     Route: 065
  10. ATENOLOL [Concomitant]
     Route: 065
  11. LOSARTAN POTASSIUM [Concomitant]
     Dosage: FREQUENCY REPORTED AS ^HALF OF 50 MG^
     Route: 065
  12. GLIMEPIRIDE [Concomitant]
     Dosage: START DATE REPORTED AS ^LONG TIME AGO^
     Route: 065
  13. OMEPRAZOLE [Concomitant]
     Dosage: START DATE REPORTED AS ^LONG TIME AGO^
     Route: 065
  14. LIPLESS [Concomitant]
     Dosage: FREQUENCY: EVERY OTHER DAY
     Route: 065
  15. CELEBRA [Concomitant]
     Indication: PAIN
     Route: 065
  16. GLIFAGE [Concomitant]
     Dosage: DRUG: GLIFAGE XR
     Route: 065
  17. DEFLAZACORT [Concomitant]
     Route: 065
  18. VITAMIN C [Concomitant]
  19. GEMFIBROZIL [Concomitant]
     Route: 065

REACTIONS (28)
  - C-reactive protein increased [Not Recovered/Not Resolved]
  - Red blood cell sedimentation rate increased [Not Recovered/Not Resolved]
  - Pain in extremity [Unknown]
  - Local swelling [Unknown]
  - Fluid retention [Unknown]
  - Limb operation [Recovering/Resolving]
  - Cataract [Recovered/Resolved]
  - Rheumatoid arthritis [Recovering/Resolving]
  - Local swelling [Not Recovered/Not Resolved]
  - Gait disturbance [Unknown]
  - Local swelling [Not Recovered/Not Resolved]
  - Foot deformity [Not Recovered/Not Resolved]
  - Nausea [Recovered/Resolved]
  - Vein disorder [Not Recovered/Not Resolved]
  - Somnolence [Unknown]
  - Vascular rupture [Unknown]
  - Skin discolouration [Not Recovered/Not Resolved]
  - Weight increased [Recovered/Resolved]
  - Joint swelling [Unknown]
  - Arthralgia [Unknown]
  - Pain [Not Recovered/Not Resolved]
  - Blood urine present [Not Recovered/Not Resolved]
  - Nephrolithiasis [Recovered/Resolved]
  - Nephrolithiasis [Not Recovered/Not Resolved]
  - Arthralgia [Not Recovered/Not Resolved]
  - Pain in extremity [Not Recovered/Not Resolved]
  - Cystitis [Recovered/Resolved]
  - Urinary tract infection [Recovered/Resolved]
